FAERS Safety Report 4375315-6 (Version None)
Quarter: 2004Q2

REPORT INFORMATION
  Report Type: 
  Country: None (occurrence: None)
  Receive Date: 20040608
  Receipt Date: 20040604
  Transmission Date: 20050107
  Serious: Yes (Death)
  Sender: FDA-Public Use
  Company Number: 04-05-0664

PATIENT
  Age: 30 Year
  Sex: Male

DRUGS (6)
  1. CLOZAPINE [Suspect]
     Indication: HUNTINGTON'S CHOREA
     Dosage: SEE IMAGE
     Route: 048
     Dates: start: 20001101, end: 20040401
  2. CLOZAPINE [Suspect]
     Indication: PARANOIA
     Dosage: SEE IMAGE
     Route: 048
     Dates: start: 20001101, end: 20040401
  3. FAMOTIDINE [Concomitant]
  4. SENNA [Concomitant]
  5. ATIVAN [Concomitant]
  6. NEURONTIN [Concomitant]

REACTIONS (1)
  - CARDIO-RESPIRATORY ARREST [None]
